FAERS Safety Report 7744990 (Version 2)
Quarter: 2015Q4

REPORT INFORMATION
  Report Type: Report from Study
  Country: US (occurrence: US)
  Receive Date: 20101231
  Receipt Date: 20151127
  Transmission Date: 20160305
  Serious: Yes (Other)
  Sender: FDA-Public Use
  Company Number: US-BIOGENIDEC-2010BI044941

PATIENT
  Age: 30 Year
  Sex: Female

DRUGS (1)
  1. AVONEX [Suspect]
     Active Substance: INTERFERON BETA-1A
     Indication: MULTIPLE SCLEROSIS
     Route: 030
     Dates: start: 20100821

REACTIONS (4)
  - Hypersensitivity [Not Recovered/Not Resolved]
  - Respiratory arrest [Unknown]
  - Emotional distress [Unknown]
  - Drug intolerance [Unknown]

NARRATIVE: CASE EVENT DATE: 201010
